FAERS Safety Report 4570500-2 (Version None)
Quarter: 2005Q1

REPORT INFORMATION
  Report Type: 
  Country: None (occurrence: None)
  Receive Date: 20050204
  Receipt Date: 20050125
  Transmission Date: 20050727
  Serious: Yes (Other)
  Sender: FDA-Public Use
  Company Number: PHEH2005US01276

PATIENT
  Age: 51 Year
  Sex: Male

DRUGS (1)
  1. ZOMETA [Suspect]
     Indication: BREAST CANCER METASTATIC
     Dosage: UNK, UNK
     Dates: start: 20020101, end: 20041001

REACTIONS (8)
  - BONE DISORDER [None]
  - DENTAL OPERATION [None]
  - INFLAMMATION [None]
  - INJURY [None]
  - OSTEONECROSIS [None]
  - PAIN [None]
  - PROCEDURAL COMPLICATION [None]
  - SURGERY [None]
